FAERS Safety Report 8757902 (Version 2)
Quarter: 2012Q4

REPORT INFORMATION
  Report Type: 
  Country: AU (occurrence: AU)
  Receive Date: 20120828
  Receipt Date: 20120905
  Transmission Date: 20130627
  Serious: Yes (Death)
  Sender: FDA-Public Use
  Company Number: AU-ROCHE-1108060

PATIENT
  Age: 40 Year
  Sex: Female

DRUGS (4)
  1. CAPECITABINE [Suspect]
     Indication: BREAST CANCER METASTATIC
     Dosage: (500 to 650 mg)
     Route: 065
     Dates: start: 19991103
  2. ADRIAMYCIN [Concomitant]
  3. MORPHINE [Concomitant]
  4. HYPNOVEL [Concomitant]
     Route: 042

REACTIONS (1)
  - Disease progression [Fatal]
